FAERS Safety Report 4338137-8 (Version None)
Quarter: 2004Q2

REPORT INFORMATION
  Report Type: 
  Country: None (occurrence: None)
  Receive Date: 20040412
  Receipt Date: 20040412
  Transmission Date: 20050107
  Serious: Yes (Hospitalization)
  Sender: FDA-Public Use
  Company Number: None

PATIENT
  Age: 62 Year
  Sex: Female
  Weight: 70.3075 kg

DRUGS (9)
  1. CAPECITABINE [Suspect]
     Indication: COLORECTAL CANCER
     Dosage: 1500 MG BID X 14 DA ORAL
     Route: 048
     Dates: start: 20040114, end: 20040310
  2. CAPECITABINE [Suspect]
     Indication: METASTASES TO LIVER
     Dosage: 1500 MG BID X 14 DA ORAL
     Route: 048
     Dates: start: 20040114, end: 20040310
  3. OXALIPLATIN [Suspect]
     Indication: COLORECTAL CANCER
     Dosage: 228 MG BID X 14 DAY   ORAL
     Route: 048
     Dates: start: 20040114, end: 20040324
  4. OXALIPLATIN [Suspect]
     Indication: METASTASES TO LIVER
     Dosage: 228 MG BID X 14 DAY   ORAL
     Route: 048
     Dates: start: 20040114, end: 20040324
  5. ZOCOR [Concomitant]
  6. ADALAT [Concomitant]
  7. HYDROCHLOROTHIAZIDE [Concomitant]
  8. ASPIRIN [Concomitant]
  9. KCL TAB [Concomitant]

REACTIONS (1)
  - JAUNDICE [None]
